FAERS Safety Report 7992855-9 (Version None)
Quarter: 2011Q4

REPORT INFORMATION
  Report Type: 
  Country: None (occurrence: None)
  Receive Date: 20111219
  Receipt Date: 20110920
  Transmission Date: 20120403
  Serious: No
  Sender: FDA-Public Use
  Company Number: US-ASTRAZENECA-2011SE43052

PATIENT
  Age: 56 Year
  Sex: Female

DRUGS (13)
  1. CRESTOR [Suspect]
     Route: 048
  2. CALCIUM WITH VITAMIN D [Concomitant]
  3. MIVALAX [Concomitant]
  4. HYDROCORTISONE CREAM [Concomitant]
  5. PREMARIN [Concomitant]
  6. VALTREX [Concomitant]
  7. KLONOPIN [Concomitant]
  8. SEROQUEL [Suspect]
     Dosage: 500 MG DAILY AND SOMETIMES 100 MG AS NEEDED
     Route: 048
  9. LAMICTAL [Concomitant]
  10. DYAZIDE [Concomitant]
  11. VITAMIN D [Concomitant]
  12. TOPAMAX [Concomitant]
  13. MULTIVITAMINE [Concomitant]

REACTIONS (4)
  - BONE PAIN [None]
  - BLOOD CHOLESTEROL INCREASED [None]
  - MYALGIA [None]
  - DRUG DOSE OMISSION [None]
